FAERS Safety Report 17216435 (Version 1)
Quarter: 2019Q4

REPORT INFORMATION
  Report Type: Spontaneous
  Country: US (occurrence: US)
  Receive Date: 20191230
  Receipt Date: 20191230
  Transmission Date: 20200122
  Serious: Yes (Hospitalization)
  Sender: FDA-Public Use
  Company Number: US-NOVOPROD-703452

PATIENT
  Age: 59 Year
  Sex: Male

DRUGS (3)
  1. NOVOLOG [Suspect]
     Active Substance: INSULIN ASPART
     Dosage: EXTRA DOSE ADMINISTERED
     Route: 058
  2. LEVEMIR [Suspect]
     Active Substance: INSULIN DETEMIR
     Indication: TYPE 2 DIABETES MELLITUS
     Dosage: 34 IU
     Route: 058
     Dates: start: 200909
  3. NOVOLOG [Suspect]
     Active Substance: INSULIN ASPART
     Indication: TYPE 2 DIABETES MELLITUS
     Dosage: 32 IU, BID (32 UNITS TWICE DAILY, SLIDING SCALE)
     Route: 058
     Dates: start: 200909

REACTIONS (7)
  - Blood glucose increased [Recovered/Resolved]
  - Blood glucose decreased [Recovered/Resolved]
  - Arthralgia [Not Recovered/Not Resolved]
  - Left ventricular failure [Unknown]
  - Expired product administered [Unknown]
  - Paraesthesia [Unknown]
  - Myopathy [Not Recovered/Not Resolved]

NARRATIVE: CASE EVENT DATE: 2012
